FAERS Safety Report 25222005 (Version 1)
Quarter: 2025Q2

REPORT INFORMATION
  Report Type: Spontaneous
  Country: FR (occurrence: FR)
  Receive Date: 20250421
  Receipt Date: 20250421
  Transmission Date: 20250717
  Serious: Yes (Hospitalization, Other)
  Sender: PFIZER
  Company Number: None

PATIENT
  Age: 68 Year
  Sex: Female
  Weight: 112 kg

DRUGS (12)
  1. EUPANTOL [Suspect]
     Active Substance: PANTOPRAZOLE SODIUM
     Dosage: 20 MG, 1X/DAY
     Route: 048
  2. QUETIAPINE [Suspect]
     Active Substance: QUETIAPINE
     Indication: Bipolar I disorder
     Dosage: 800 MG, 1X/DAY
     Route: 048
     Dates: end: 20250315
  3. CYAMEMAZINE [Suspect]
     Active Substance: CYAMEMAZINE
     Indication: Bipolar I disorder
     Dosage: 75 MG, 1X/DAY
     Route: 048
     Dates: end: 20250315
  4. VALPROATE SODIUM [Suspect]
     Active Substance: VALPROATE SODIUM
     Indication: Bipolar I disorder
     Dosage: 1.5 G, 1X/DAY
     Route: 048
     Dates: end: 20250315
  5. LEVOMEPROMAZINE [Suspect]
     Active Substance: LEVOMEPROMAZINE
     Indication: Bipolar I disorder
     Dosage: 50 MG, 1X/DAY
     Route: 048
     Dates: end: 20250315
  6. FUROSEMIDE [Suspect]
     Active Substance: FUROSEMIDE
     Dosage: 40 MG, 1X/DAY
     Route: 048
     Dates: end: 20250315
  7. TRIMEPRAZINE [Suspect]
     Active Substance: TRIMEPRAZINE
     Indication: Insomnia
     Dosage: 10 MG, 1X/DAY
     Route: 048
     Dates: end: 20250315
  8. OXAZEPAM [Suspect]
     Active Substance: OXAZEPAM
     Indication: Bipolar I disorder
     Dosage: 150 MG, 1X/DAY
     Route: 048
     Dates: end: 20250315
  9. SYMBICORT [Concomitant]
     Active Substance: BUDESONIDE\FORMOTEROL FUMARATE DIHYDRATE
  10. CALCIUM CARBONATE\CHOLECALCIFEROL [Concomitant]
     Active Substance: CALCIUM CARBONATE\CHOLECALCIFEROL
  11. DOLIPRANE [Concomitant]
     Active Substance: ACETAMINOPHEN
  12. LUMIGAN [Concomitant]
     Active Substance: BIMATOPROST

REACTIONS (2)
  - Delirium [Recovered/Resolved]
  - Hyponatraemia [Recovered/Resolved]

NARRATIVE: CASE EVENT DATE: 20250315
